FAERS Safety Report 9192035 (Version 1)
Quarter: 2013Q1

REPORT INFORMATION
  Report Type: Spontaneous
  Country: AU (occurrence: None)
  Receive Date: 20130325
  Receipt Date: 20130325
  Transmission Date: 20140127
  Serious: Yes (Disabling, Other)
  Sender: FDA-Public Use
  Company Number: 2013P1003350

PATIENT
  Age: 58 Year
  Sex: Female

DRUGS (1)
  1. METOPROLOL [Suspect]
     Indication: SUPRAVENTRICULAR TACHYCARDIA
     Dates: start: 201002

REACTIONS (11)
  - Onycholysis [None]
  - Impaired work ability [None]
  - Activities of daily living impaired [None]
  - Nail pitting [None]
  - Nail psoriasis [None]
  - Onychalgia [None]
  - Nail discolouration [None]
  - Nail discolouration [None]
  - Splinter haemorrhages [None]
  - Onychoclasis [None]
  - No therapeutic response [None]
